FAERS Safety Report 18789375 (Version 1)
Quarter: 2021Q1

REPORT INFORMATION
  Report Type: Spontaneous
  Country: US (occurrence: US)
  Receive Date: 20210126
  Receipt Date: 20210126
  Transmission Date: 20210419
  Serious: No
  Sender: FDA-Public Use
  Company Number: US-BAYER-2021-035420

PATIENT
  Age: 26 Year
  Sex: Female

DRUGS (1)
  1. GADAVIST [Suspect]
     Active Substance: GADOBUTROL
     Indication: SPINAL MYELOGRAM
     Route: 037

REACTIONS (3)
  - Incorrect route of product administration [None]
  - Product use in unapproved indication [None]
  - Off label use [None]
